FAERS Safety Report 8813274 (Version 1)
Quarter: 2012Q4

REPORT INFORMATION
  Report Type: 
  Country: US (occurrence: US)
  Receive Date: 20120927
  Receipt Date: 20120927
  Transmission Date: 20130627
  Serious: No
  Sender: FDA-Public Use
  Company Number: US-AMGEN-USASP2012043118

PATIENT
  Age: 70 Year
  Sex: Female
  Weight: 54 kg

DRUGS (6)
  1. PROLIA [Suspect]
     Indication: OSTEOPOROSIS POSTMENOPAUSAL
     Dosage: 60 mg, UNK
     Route: 058
     Dates: start: 20120606
  2. CALCIUM [Concomitant]
     Indication: OSTEOPOROSIS
     Dosage: 600 mg, qd
     Route: 048
  3. METOPROLOL [Concomitant]
     Indication: HYPERTENSION
     Dosage: 50 mg, qd
     Route: 048
  4. SENNA [Concomitant]
     Indication: CONSTIPATION
     Dosage: 8.6 mg, q2wk
     Route: 048
  5. MVI [Concomitant]
     Dosage: UNK UNK, qd
     Route: 048
  6. LOSARTAM PLUS [Concomitant]
     Indication: HYPERTENSION
     Dosage: UNK UNK, qd
     Route: 048
     Dates: start: 20110106, end: 20120611

REACTIONS (13)
  - Hepatic enzyme increased [Recovered/Resolved]
  - Pyrexia [Recovering/Resolving]
  - Malaise [Recovering/Resolving]
  - Headache [Recovered/Resolved]
  - Photophobia [Recovered/Resolved]
  - Chills [Unknown]
  - Nausea [Unknown]
  - Pain [Unknown]
  - Dizziness [Unknown]
  - Arthropod bite [Unknown]
  - Myalgia [Recovered/Resolved]
  - Arthralgia [Recovered/Resolved]
  - Asthenia [Unknown]
